FAERS Safety Report 15869101 (Version 7)
Quarter: 2025Q4

REPORT INFORMATION
  Report Type: Report from Study
  Country: EU (occurrence: EU)
  Receive Date: 20190125
  Receipt Date: 20251230
  Transmission Date: 20260118
  Serious: Yes (Other)
  Sender: MYLAN
  Company Number: EU-BRISTOL-MYERS SQUIBB COMPANY-BMS-2017-121918

PATIENT
  Age: 64 Year
  Sex: Female
  Weight: 62 kg

DRUGS (54)
  1. PACLITAXEL [Suspect]
     Active Substance: PACLITAXEL
     Indication: Breast cancer
     Dosage: 110 MILLIGRAM/SQ. METER, QWK85MG/M2
     Dates: start: 20170131, end: 20170210
  2. PACLITAXEL [Suspect]
     Active Substance: PACLITAXEL
     Dosage: 80 MILLIGRAM/SQ. METER
     Dates: start: 20170224
  3. PACLITAXEL [Suspect]
     Active Substance: PACLITAXEL
     Dosage: 110 MILLIGRAM/SQ. METER, QWK
     Dates: start: 20170210
  4. PACLITAXEL [Suspect]
     Active Substance: PACLITAXEL
     Dosage: 85 MILLIGRAM/SQ. METER, QWK
     Dates: start: 20170418
  5. PACLITAXEL [Suspect]
     Active Substance: PACLITAXEL
     Dosage: 85 MILLIGRAM/SQ. METER, QWK
     Route: 061
     Dates: start: 20170705, end: 20170719
  6. PACLITAXEL [Suspect]
     Active Substance: PACLITAXEL
     Dosage: 95 MILLIGRAM, QW
     Route: 061
     Dates: start: 20170426, end: 20170628
  7. PACLITAXEL [Suspect]
     Active Substance: PACLITAXEL
     Dosage: 115 MILLIGRAM, QW
     Route: 061
     Dates: start: 20170224, end: 20170403
  8. CAPECITABINE [Suspect]
     Active Substance: CAPECITABINE
     Indication: Breast cancer
     Dosage: 15000 MILLIGRAM, BID
     Route: 061
     Dates: start: 20171220, end: 20180108
  9. CAPECITABINE [Suspect]
     Active Substance: CAPECITABINE
     Dosage: 15000 MILLIGRAM, Q3W, FOR 14 DAYS EVERY
     Route: 061
     Dates: start: 20180119, end: 20180709
  10. EXEMESTANE [Suspect]
     Active Substance: EXEMESTANE
     Indication: Breast cancer
     Dosage: 25 MILLIGRAM, QD
     Route: 061
     Dates: start: 20170726, end: 20171219
  11. AROMASIN [Suspect]
     Active Substance: EXEMESTANE
     Indication: Breast cancer
     Dosage: 25 MILLIGRAM, QD
     Route: 061
     Dates: start: 20170726, end: 20171219
  12. TRASTUZUMAB [Suspect]
     Active Substance: TRASTUZUMAB
     Indication: HER2 positive breast cancer
     Dosage: 6 MILLIGRAM/KILOGRAM, Q3W
     Dates: start: 20170224, end: 20171128
  13. TRASTUZUMAB [Suspect]
     Active Substance: TRASTUZUMAB
     Dosage: 8 MILLIGRAM/KILOGRAM, Q3W
     Dates: start: 20170131, end: 20170131
  14. TRASTUZUMAB [Suspect]
     Active Substance: TRASTUZUMAB
     Dosage: 600 MILLIGRAM, Q3W
     Dates: start: 20180727, end: 20180817
  15. TRASTUZUMAB [Suspect]
     Active Substance: TRASTUZUMAB
     Dosage: 6 MILLIGRAM/KILOGRAM, Q3W
     Dates: start: 20180811, end: 20181009
  16. PACLITAXEL [Suspect]
     Active Substance: PACLITAXEL
     Indication: Breast cancer
     Dosage: 95 MILLIGRAM/SQ. METER, QW
     Route: 061
     Dates: start: 20170426, end: 20170628
  17. PACLITAXEL [Suspect]
     Active Substance: PACLITAXEL
     Dosage: 115 MILLIGRAM, QW
     Route: 061
     Dates: start: 20170224, end: 20170403
  18. VINORELBINE [Suspect]
     Active Substance: VINORELBINE TARTRATE
     Indication: Breast cancer
     Dosage: 80 MILLIGRAM
     Route: 061
  19. VINORELBINE [Suspect]
     Active Substance: VINORELBINE TARTRATE
     Dosage: 80 MILLIGRAM, Q3W
     Route: 061
     Dates: start: 20180911
  20. VINORELBINE [Suspect]
     Active Substance: VINORELBINE TARTRATE
     Dosage: 60 MILLIGRAM/SQ. METER, Q3WK
     Route: 061
     Dates: start: 20180727, end: 20180817
  21. VINORELBINE [Suspect]
     Active Substance: VINORELBINE TARTRATE
     Dosage: 80 MILLIGRAM
     Route: 061
  22. VINORELBINE [Suspect]
     Active Substance: VINORELBINE TARTRATE
     Dosage: 80 MILLIGRAM
     Route: 061
  23. TAXOL [Suspect]
     Active Substance: PACLITAXEL
     Indication: Breast cancer
     Dosage: 85 MILLIGRAM/SQ. METER, QW
     Dates: start: 20170705
  24. TAXOL [Suspect]
     Active Substance: PACLITAXEL
     Indication: HER2 positive breast cancer
     Dosage: 110 MILLIGRAM/SQ. METER, QW
     Dates: start: 20170210
  25. TAXOL [Suspect]
     Active Substance: PACLITAXEL
     Dosage: 80 MILLIGRAM/SQ. METER, QW
     Dates: start: 20170224
  26. TAXOL [Suspect]
     Active Substance: PACLITAXEL
     Dosage: 85 MILLIGRAM/SQ. METER, QW
     Dates: start: 20170418
  27. TAXOL [Suspect]
     Active Substance: PACLITAXEL
     Dosage: 110 MILLIGRAM/SQ. METER, QW
     Dates: start: 20170131
  28. TAXOL [Suspect]
     Active Substance: PACLITAXEL
     Dosage: 95 MILLIGRAM/SQ. METER, QW
     Dates: start: 20170426, end: 20170628
  29. TAXOL [Suspect]
     Active Substance: PACLITAXEL
     Dosage: FREQUENCY: WEEKLYMOST RECENT DOSES PRIOR TO THE EVENT: 10/FEB/2017, 18/APR/2017, 26/APR/2017, MOST
     Dates: start: 20170131, end: 20170426
  30. PERTUZUMAB [Suspect]
     Active Substance: PERTUZUMAB
     Indication: HER2 positive breast cancer
     Dosage: 420 MG/3 WEEK, UNK
     Dates: start: 20170131, end: 20170224
  31. PERTUZUMAB [Suspect]
     Active Substance: PERTUZUMAB
     Dosage: 840 MILLIGRAM, Q3W (420 MG/3 WEEK, UNK)
     Dates: start: 20170131, end: 20170131
  32. PERTUZUMAB [Suspect]
     Active Substance: PERTUZUMAB
     Dosage: 8 MG/KG
     Dates: start: 20170224, end: 20171128
  33. LAPATINIB [Suspect]
     Active Substance: LAPATINIB
     Indication: Breast cancer
     Dosage: THREE TIMES A DAY
     Route: 061
     Dates: start: 20180223, end: 20180302
  34. LAPATINIB [Suspect]
     Active Substance: LAPATINIB
     Dosage: FOUR TIMES A DAY
     Route: 061
     Dates: start: 20180303, end: 201803
  35. LAPATINIB [Suspect]
     Active Substance: LAPATINIB
     Dosage: TWICE A DAY
     Route: 061
     Dates: start: 20180216, end: 20180222
  36. LAPATINIB [Suspect]
     Active Substance: LAPATINIB
     Dosage: 250 MILLIGRAM, 0.3 TIMES PER DAY
     Route: 061
     Dates: start: 20180330, end: 20180720
  37. LAPATINIB [Suspect]
     Active Substance: LAPATINIB
     Dosage: FIVE TIMES A DAY
     Route: 061
     Dates: start: 20171219, end: 20180108
  38. LAPATINIB [Suspect]
     Active Substance: LAPATINIB
     Dosage: FOUR TIMES A DAY
     Route: 061
     Dates: start: 201803, end: 201803
  39. RACECADOTRIL [Concomitant]
     Active Substance: RACECADOTRIL
     Indication: Diarrhoea
     Dosage: UNK
  40. RACECADOTRIL [Concomitant]
     Active Substance: RACECADOTRIL
     Dosage: UNK
     Dates: start: 20170705, end: 20170726
  41. BECLOMETHASONE DIPROPIONATE [Concomitant]
     Active Substance: BECLOMETHASONE DIPROPIONATE
     Dosage: UNK
  42. IMODIUM [Concomitant]
     Active Substance: LOPERAMIDE HYDROCHLORIDE
     Dosage: UNK
     Dates: start: 20170705, end: 20170821
  43. SERTRALINE [Concomitant]
     Active Substance: SERTRALINE HYDROCHLORIDE
     Dosage: UNK
  44. AMBROXOL HYDROCHLORIDE [Concomitant]
     Active Substance: AMBROXOL HYDROCHLORIDE
     Dosage: UNK
     Dates: start: 20170702, end: 20170705
  45. XANAX [Concomitant]
     Active Substance: ALPRAZOLAM
     Dosage: 1 DOSAGE FORM
  46. CHOLECALCIFEROL [Concomitant]
     Active Substance: CHOLECALCIFEROL
     Dosage: UNK
  47. GABAPENTIN [Concomitant]
     Active Substance: GABAPENTIN
     Dosage: UNK
  48. ZOFRAN [Concomitant]
     Active Substance: ONDANSETRON HYDROCHLORIDE
     Indication: Product used for unknown indication
     Dosage: UNK
  49. BETAMETHASONE SODIUM PHOSPHATE [Concomitant]
     Active Substance: BETAMETHASONE SODIUM PHOSPHATE
     Dosage: UNK
  50. AMLODIPINE BESYLATE\OLMESARTAN MEDOXOMIL [Concomitant]
     Active Substance: AMLODIPINE BESYLATE\OLMESARTAN MEDOXOMIL
     Dosage: UNK
  51. DENOSUMAB [Concomitant]
     Active Substance: DENOSUMAB
     Dosage: UNK
     Dates: start: 20170823, end: 20180727
  52. BECLOMETHASONE DIPROPIONATE [Concomitant]
     Active Substance: BECLOMETHASONE DIPROPIONATE
     Indication: Product used for unknown indication
     Dosage: UNK
     Dates: start: 20170702, end: 20170705
  53. MEDROL [Concomitant]
     Active Substance: METHYLPREDNISOLONE
     Dosage: UNK
     Dates: start: 20180725, end: 20180731
  54. MEDROL [Concomitant]
     Active Substance: METHYLPREDNISOLONE
     Dosage: UNK
     Dates: start: 20180720, end: 20180724

REACTIONS (7)
  - Hypokalaemia [Recovered/Resolved]
  - Leukopenia [Recovered/Resolved]
  - Diarrhoea [Recovered/Resolved]
  - Paraesthesia [Recovered/Resolved]
  - Malaise [Recovered/Resolved]
  - Cough [Recovered/Resolved]
  - Asthenia [Recovered/Resolved]

NARRATIVE: CASE EVENT DATE: 20170418
